FAERS Safety Report 8043859-1 (Version None)
Quarter: 2012Q1

REPORT INFORMATION
  Report Type: 
  Country: None (occurrence: None)
  Receive Date: 20120113
  Receipt Date: 20120105
  Transmission Date: 20120608
  Serious: No
  Sender: FDA-Public Use
  Company Number: US-BIOGENIDEC-2012BI000811

PATIENT
  Sex: Female

DRUGS (1)
  1. TYSABRI [Suspect]
     Indication: MULTIPLE SCLEROSIS
     Route: 042
     Dates: start: 20100309

REACTIONS (7)
  - EMOTIONAL DISORDER [None]
  - STRESS [None]
  - MEMORY IMPAIRMENT [None]
  - BRONCHITIS [None]
  - DRUG INEFFECTIVE [None]
  - MOBILITY DECREASED [None]
  - MENTAL DISORDER [None]
